FAERS Safety Report 4515481-2 (Version None)
Quarter: 2004Q4

REPORT INFORMATION
  Report Type: 
  Country: None (occurrence: None)
  Receive Date: 20041126
  Receipt Date: 20041116
  Transmission Date: 20050328
  Serious: No
  Sender: FDA-Public Use
  Company Number: IND-AE-04-SAN-019

PATIENT
  Age: 74 Year
  Sex: Female
  Weight: 62.1428 kg

DRUGS (4)
  1. SANCTURA [Suspect]
     Indication: HYPERTONIC BLADDER
     Dosage: 20 MG-QD- ORAL
     Route: 048
     Dates: start: 20041014, end: 20041020
  2. XALATAN [Concomitant]
  3. METFORMIN HCL [Concomitant]
  4. COSOPT [Concomitant]

REACTIONS (5)
  - ANOREXIA [None]
  - CONSTIPATION [None]
  - FAECALOMA [None]
  - THERAPY NON-RESPONDER [None]
  - URINARY TRACT INFECTION [None]
